FAERS Safety Report 23081967 (Version 1)
Quarter: 2023Q4

REPORT INFORMATION
  Report Type: Spontaneous
  Country: US (occurrence: US)
  Receive Date: 20231019
  Receipt Date: 20231019
  Transmission Date: 20240110
  Serious: No
  Sender: FDA-Public Use
  Company Number: US-GLAXOSMITHKLINE-USCH2023049386

PATIENT
  Age: 64 Year
  Sex: Female

DRUGS (1)
  1. NICORETTE CINNAMON SURGE [Suspect]
     Active Substance: NICOTINE
     Indication: Nicotine dependence
     Dosage: UNK
     Dates: start: 20231011, end: 20231016

REACTIONS (2)
  - Breast pain [Unknown]
  - Product complaint [Unknown]
